FAERS Safety Report 8792877 (Version 2)
Quarter: 2012Q4

REPORT INFORMATION
  Report Type: 
  Country: JP (occurrence: JP)
  Receive Date: 20120918
  Receipt Date: 20120925
  Transmission Date: 20130627
  Serious: Yes (Hospitalization)
  Sender: FDA-Public Use
  Company Number: JP-PFIZER INC-2012211752

PATIENT
  Age: 75 Year
  Sex: Male
  Weight: 44.1 kg

DRUGS (7)
  1. LYRICA [Suspect]
     Indication: PROCEDURAL PAIN
     Dosage: 75 mg, 1x/day
     Route: 048
     Dates: start: 201110
  2. PRORENAL [Suspect]
     Indication: SPINAL COLUMN STENOSIS
     Dosage: 5 ug, 3x/day
     Route: 048
     Dates: start: 201111
  3. DEPAS [Suspect]
     Indication: INSOMNIA
     Dosage: 0.5 mg, 1x/day
     Route: 048
     Dates: start: 201204
  4. TRAMACET [Suspect]
     Indication: SPINAL COLUMN STENOSIS
     Dosage: 1 DF, 3x/day
     Route: 048
     Dates: start: 201204
  5. MAGMITT [Concomitant]
     Indication: GASTRITIS
     Dosage: UNK
     Route: 048
  6. BIO-THREE [Concomitant]
     Indication: GASTROINTESTINAL DISORDER
     Dosage: UNK
     Route: 048
  7. BAKTAR [Concomitant]
     Dosage: 1 DF, 1x/day
     Route: 048

REACTIONS (1)
  - Eosinophilic pneumonia [Recovering/Resolving]
